FAERS Safety Report 18359845 (Version 1)
Quarter: 2020Q4

REPORT INFORMATION
  Report Type: Spontaneous
  Country: GR (occurrence: GR)
  Receive Date: 20201008
  Receipt Date: 20201008
  Transmission Date: 20210114
  Serious: Yes (Other)
  Sender: FDA-Public Use
  Company Number: GR-LUPIN PHARMACEUTICALS INC.-2020-06933

PATIENT
  Age: 79 Year
  Sex: Male

DRUGS (1)
  1. AZACITIDINE. [Suspect]
     Active Substance: AZACITIDINE
     Indication: CHRONIC MYELOMONOCYTIC LEUKAEMIA
     Dosage: 75 MILLIGRAM/SQ. METER (FOR 7 DAYS ON 28-DAY CYCLES; DISCONTINUED ON CYCLE 6)
     Route: 058

REACTIONS (4)
  - Anaemia [Recovering/Resolving]
  - Therapeutic response decreased [Unknown]
  - Myelosuppression [Recovering/Resolving]
  - Drug intolerance [Unknown]
